FAERS Safety Report 4434804-6 (Version None)
Quarter: 2004Q3

REPORT INFORMATION
  Report Type: 
  Country: None (occurrence: None)
  Receive Date: 20040827
  Receipt Date: 20040818
  Transmission Date: 20050211
  Serious: Yes (Death, Other)
  Sender: FDA-Public Use
  Company Number: PHBS2004DE10897

PATIENT
  Age: 63 Year
  Sex: Male

DRUGS (10)
  1. CYCLOSPORINE [Suspect]
     Indication: STEM CELL TRANSPLANT
     Dosage: 2.5 MG/KG, BID
     Route: 042
  2. CYCLOPHOSPHAMIDE [Suspect]
     Indication: STEM CELL TRANSPLANT
     Dosage: 60 MG/KG/D
     Route: 042
  3. FLUDARABINE PHOSPHATE [Suspect]
     Indication: STEM CELL TRANSPLANT
     Dosage: 25 MG/M2/D
     Route: 042
  4. ATG-FRESENIUS [Suspect]
     Indication: STEM CELL TRANSPLANT
     Dosage: 10 MG/KG/D
  5. CIPROFLOXACIN [Concomitant]
     Dosage: 500 MG, BID
  6. AMPHOTERICIN B [Concomitant]
     Dosage: 1 ML, QID
  7. CO-TRIMOXAZOLE [Concomitant]
  8. ACYCLOVIR [Concomitant]
     Dosage: 5 MG/KG, TID
     Route: 042
  9. IMMUNE GLOBULIN INTRAVENOUS (HUMAN) [Concomitant]
     Dosage: 10 G EVERY 2 WEEKS
     Route: 042
  10. BLOOD TRANSFUSION, AUXILIARY PRODUCTS [Concomitant]

REACTIONS (5)
  - ATRIAL FIBRILLATION [None]
  - BONE MARROW DEPRESSION [None]
  - PANCYTOPENIA [None]
  - PYREXIA [None]
  - SEPSIS [None]
